FAERS Safety Report 8414262-7 (Version None)
Quarter: 2012Q2

REPORT INFORMATION
  Report Type: 
  Country: None (occurrence: None)
  Receive Date: 20120605
  Receipt Date: 20120516
  Transmission Date: 20120825
  Serious: No
  Sender: FDA-Public Use
  Company Number: US-ASTRAZENECA-2010SE59290

PATIENT
  Age: 62 Year
  Sex: Female

DRUGS (6)
  1. CRESTOR [Suspect]
     Dosage: IN THE MORNING
     Route: 048
  2. AMBIEN [Concomitant]
  3. MELATONIN [Concomitant]
  4. BENADRYL [Concomitant]
  5. CRESTOR [Suspect]
     Dosage: AT NIGHT
     Route: 048
  6. PRAVASTATIN [Suspect]
     Route: 065

REACTIONS (9)
  - TOOTH FRACTURE [None]
  - INJURY [None]
  - MALAISE [None]
  - SINUSITIS [None]
  - INSOMNIA [None]
  - LIGAMENT RUPTURE [None]
  - APHONIA [None]
  - INAPPROPRIATE SCHEDULE OF DRUG ADMINISTRATION [None]
  - DRUG DOSE OMISSION [None]
